FAERS Safety Report 21076134 (Version 1)
Quarter: 2022Q3

REPORT INFORMATION
  Report Type: Spontaneous
  Country: CN (occurrence: CN)
  Receive Date: 20220713
  Receipt Date: 20220713
  Transmission Date: 20221027
  Serious: Yes (Other)
  Sender: FDA-Public Use
  Company Number: CN-PFIZER INC-PV202200020469

PATIENT
  Age: 47 Year
  Sex: Female
  Weight: 56 kg

DRUGS (3)
  1. EPIRUBICIN [Suspect]
     Active Substance: EPIRUBICIN
     Indication: Breast cancer
     Dosage: 130 UG, 1X/DAY
     Route: 041
     Dates: start: 20220603, end: 20220603
  2. CYCLOPHOSPHAMIDE [Suspect]
     Active Substance: CYCLOPHOSPHAMIDE
     Indication: Breast cancer
     Dosage: 0.9 G, 1X/DAY
     Route: 041
     Dates: start: 20220603, end: 20220603
  3. PYROTINIB MALEATE [Suspect]
     Active Substance: PYROTINIB MALEATE
     Indication: Breast cancer
     Dosage: 400 MG, 1X/DAY
     Route: 048
     Dates: start: 20220507, end: 20220628

REACTIONS (1)
  - Hepatic function abnormal [Recovering/Resolving]

NARRATIVE: CASE EVENT DATE: 20220624
